FAERS Safety Report 15761299 (Version 1)
Quarter: 2018Q4

REPORT INFORMATION
  Report Type: Spontaneous
  Country: TW (occurrence: TW)
  Receive Date: 20181226
  Receipt Date: 20181226
  Transmission Date: 20190205
  Serious: Yes (Other)
  Sender: FDA-Public Use
  Company Number: TW-PFIZER INC-2016408212

PATIENT
  Age: 41 Year
  Sex: Male

DRUGS (1)
  1. SUTENT [Suspect]
     Active Substance: SUNITINIB MALATE
     Indication: RENAL CELL CARCINOMA
     Dosage: 50 MG, CYCLIC (ONCE A DAY, TWO WEEKS ON AND ONE WEEK OFF)
     Route: 048
     Dates: start: 20160713, end: 201807

REACTIONS (11)
  - Tumour rupture [Unknown]
  - Yellow skin [Not Recovered/Not Resolved]
  - Neoplasm progression [Unknown]
  - Blood pressure increased [Recovered/Resolved]
  - Nasal dryness [Recovered/Resolved]
  - Hair colour changes [Unknown]
  - Mouth ulceration [Recovered/Resolved]
  - Hemiplegia [Unknown]
  - Rhinalgia [Recovered/Resolved]
  - Palmar-plantar erythrodysaesthesia syndrome [Not Recovered/Not Resolved]
  - Paronychia [Recovered/Resolved]

NARRATIVE: CASE EVENT DATE: 201608
